FAERS Safety Report 8433389-7 (Version None)
Quarter: 2012Q2

REPORT INFORMATION
  Report Type: 
  Country: None (occurrence: None)
  Receive Date: 20120613
  Receipt Date: 20120613
  Transmission Date: 20120825
  Serious: Yes (Other)
  Sender: FDA-Public Use
  Company Number: US-JNJFOC-20120112028

PATIENT
  Sex: Female
  Weight: 48.08 kg

DRUGS (4)
  1. CONCERTA [Suspect]
     Indication: ATTENTION DEFICIT/HYPERACTIVITY DISORDER
     Route: 048
     Dates: end: 20120101
  2. RISPERIDONE [Suspect]
     Indication: BIPOLAR II DISORDER
     Dosage: 2 MG IN THE MORNING AND 1 MG IN THE EVENING
     Route: 048
     Dates: start: 20110801, end: 20120101
  3. CONCERTA [Suspect]
     Indication: LEARNING DISABILITY
     Route: 048
     Dates: end: 20120101
  4. RISPERIDONE [Suspect]
     Indication: BIPOLAR II DISORDER
     Dosage: 2 MG IN THE MORNING AND 1 MG IN THE EVENING
     Route: 048
     Dates: end: 20110801

REACTIONS (18)
  - OROPHARYNGEAL PAIN [None]
  - MENSTRUAL DISORDER [None]
  - OFF LABEL USE [None]
  - NEUROLEPTIC MALIGNANT SYNDROME [None]
  - BLOOD TRIGLYCERIDES INCREASED [None]
  - DRY SKIN [None]
  - PAIN [None]
  - INFERTILITY [None]
  - BLISTER [None]
  - WEIGHT FLUCTUATION [None]
  - BRAIN INJURY [None]
  - DIZZINESS [None]
  - EYE DISORDER [None]
  - BLOOD GLUCOSE INCREASED [None]
  - ACNE [None]
  - BREAST MASS [None]
  - ATTENTION DEFICIT/HYPERACTIVITY DISORDER [None]
  - GALACTORRHOEA [None]
